FAERS Safety Report 23927917 (Version 1)
Quarter: 2024Q2

REPORT INFORMATION
  Report Type: Spontaneous
  Country: US (occurrence: US)
  Receive Date: 20240531
  Receipt Date: 20240531
  Transmission Date: 20240716
  Serious: No
  Sender: FDA-Public Use
  Company Number: US-RADIUS HEALTH INC.-2023US002509

PATIENT
  Age: 69 Year
  Sex: Female

DRUGS (1)
  1. TYMLOS [Suspect]
     Active Substance: ABALOPARATIDE
     Indication: Osteoarthritis
     Dosage: 80 MCG, DAILY
     Route: 058
     Dates: start: 202304

REACTIONS (8)
  - Presyncope [Unknown]
  - Abdominal discomfort [Unknown]
  - Neuropathy peripheral [Unknown]
  - Headache [Unknown]
  - Bone pain [Unknown]
  - Palpitations [Unknown]
  - Dizziness [Unknown]
  - Product use in unapproved indication [Unknown]

NARRATIVE: CASE EVENT DATE: 20230401
